FAERS Safety Report 9399763 (Version 1)
Quarter: 2013Q3

REPORT INFORMATION
  Report Type: Spontaneous
  Country: FR (occurrence: FR)
  Receive Date: 20130715
  Receipt Date: 20130715
  Transmission Date: 20140515
  Serious: No
  Sender: FDA-Public Use
  Company Number: FR-JNJFOC-20130705100

PATIENT
  Age: 68 Year
  Sex: Male

DRUGS (1)
  1. DUROGESIC [Suspect]
     Indication: CANCER PAIN
     Route: 062
     Dates: start: 20130704

REACTIONS (4)
  - Nausea [Unknown]
  - Vomiting [Unknown]
  - Wrong technique in drug usage process [Unknown]
  - Off label use [Unknown]
